FAERS Safety Report 4638228-8 (Version None)
Quarter: 2005Q2

REPORT INFORMATION
  Report Type: 
  Country: None (occurrence: None)
  Receive Date: 20050415
  Receipt Date: 20050325
  Transmission Date: 20051028
  Serious: Yes (Other)
  Sender: FDA-Public Use
  Company Number: USA050394104

PATIENT
  Age: 1 Day
  Sex: Male

DRUGS (2)
  1. ZYPREXA [Suspect]
     Dates: start: 20040101, end: 20050325
  2. LITHIUM CARBONATE [Concomitant]

REACTIONS (2)
  - DRUG EXPOSURE DURING PREGNANCY [None]
  - NEONATAL RESPIRATORY DEPRESSION [None]
